FAERS Safety Report 6699377-6 (Version None)
Quarter: 2010Q2

REPORT INFORMATION
  Report Type: 
  Country: None (occurrence: None)
  Receive Date: 20100426
  Receipt Date: 20100414
  Transmission Date: 20101027
  Serious: Yes (Hospitalization)
  Sender: FDA-Public Use
  Company Number: 10-151

PATIENT
  Sex: Female

DRUGS (1)
  1. ERGOCALCIFEROL [Suspect]
     Indication: DRUG USE FOR UNKNOWN INDICATION
     Dosage: 1.25 MG, ORAL
     Route: 048
     Dates: start: 20100403

REACTIONS (17)
  - ABNORMAL BEHAVIOUR [None]
  - AMNESIA [None]
  - ASTHENIA [None]
  - BONE PAIN [None]
  - CONFUSIONAL STATE [None]
  - DECREASED APPETITE [None]
  - DYSGEUSIA [None]
  - DYSPNOEA [None]
  - IRRITABILITY [None]
  - LIP SWELLING [None]
  - MALAISE [None]
  - MYALGIA [None]
  - NAUSEA [None]
  - SWELLING FACE [None]
  - SWOLLEN TONGUE [None]
  - THINKING ABNORMAL [None]
  - URTICARIA [None]
